FAERS Safety Report 18456602 (Version 1)
Quarter: 2020Q4

REPORT INFORMATION
  Report Type: Spontaneous
  Country: US (occurrence: US)
  Receive Date: 20201102
  Receipt Date: 20201102
  Transmission Date: 20210114
  Serious: No
  Sender: FDA-Public Use
  Company Number: None

PATIENT
  Sex: Female

DRUGS (2)
  1. ENOXAPARIN [Concomitant]
     Active Substance: ENOXAPARIN
  2. UDENYCA [Suspect]
     Active Substance: PEGFILGRASTIM-CBQV
     Indication: PRODUCT USED FOR UNKNOWN INDICATION
     Dosage: 24-48 HRS AFTER CHEMOTHERAPY
     Route: 058
     Dates: start: 20201030

REACTIONS (1)
  - Pain [None]
